FAERS Safety Report 26217225 (Version 1)
Quarter: 2025Q4

REPORT INFORMATION
  Report Type: Spontaneous
  Country: BR (occurrence: BR)
  Receive Date: 20251231
  Receipt Date: 20251231
  Transmission Date: 20260117
  Serious: Yes (Other)
  Sender: ACCORD
  Company Number: BR-Accord-520470

PATIENT
  Sex: Female
  Weight: 73 kg

DRUGS (6)
  1. APIXABAN [Suspect]
     Active Substance: APIXABAN
     Indication: Pulmonary thrombosis
     Dosage: STRENGTH: 5 MG
     Route: 048
     Dates: start: 20251109
  2. BETAMETHASONE;DEXCHLORPHENIRAMINE [Concomitant]
     Dosage: STRENGTH: 10 MG
  3. FOSTAIR DPI [Concomitant]
  4. PANTOPRAZOLE [Concomitant]
     Active Substance: PANTOPRAZOLE
  5. VORTIOXETINE [Concomitant]
     Active Substance: VORTIOXETINE
     Dosage: STRENGTH: 10 MG
  6. LOSARTAN POTASSIUM [Concomitant]
     Active Substance: LOSARTAN POTASSIUM
     Indication: Hypertension
     Dosage: STRENGTH: 50 MG?ONE TABLET IN THE MORNING
     Route: 048

REACTIONS (4)
  - Pruritus [Recovering/Resolving]
  - Pneumonia [Recovering/Resolving]
  - Skin ulcer [Recovering/Resolving]
  - Pain in extremity [Recovering/Resolving]

NARRATIVE: CASE EVENT DATE: 20251109
